FAERS Safety Report 16783633 (Version 1)
Quarter: 2019Q3

REPORT INFORMATION
  Report Type: Report from Study
  Country: US (occurrence: US)
  Receive Date: 20190908
  Receipt Date: 20190908
  Transmission Date: 20191005
  Serious: Yes (Other)
  Sender: FDA-Public Use
  Company Number: US-BIOGEN-2019BI00781897

PATIENT
  Sex: Female

DRUGS (1)
  1. TECFIDERA [Suspect]
     Active Substance: DIMETHYL FUMARATE
     Indication: MULTIPLE SCLEROSIS
     Route: 065
     Dates: start: 20190501

REACTIONS (7)
  - Paraesthesia [Recovered/Resolved]
  - Mobility decreased [Recovered/Resolved]
  - Hypoaesthesia [Recovered/Resolved]
  - Malaise [Unknown]
  - Intervertebral disc protrusion [Recovered/Resolved]
  - Pain [Not Recovered/Not Resolved]
  - Spinal osteoarthritis [Not Recovered/Not Resolved]
